FAERS Safety Report 7210546-9 (Version None)
Quarter: 2011Q1

REPORT INFORMATION
  Report Type: 
  Country: None (occurrence: None)
  Receive Date: 20110105
  Receipt Date: 20101230
  Transmission Date: 20110831
  Serious: Yes (Other)
  Sender: FDA-Public Use
  Company Number: FR-ROCHE-751146

PATIENT
  Sex: Female

DRUGS (8)
  1. ROACTEMRA [Suspect]
     Route: 042
     Dates: start: 20100706
  2. ROACTEMRA [Suspect]
     Route: 042
     Dates: start: 20100928
  3. ROACTEMRA [Suspect]
     Route: 042
     Dates: start: 20100831
  4. ROACTEMRA [Suspect]
     Route: 042
     Dates: start: 20101123
  5. ROACTEMRA [Suspect]
     Route: 042
     Dates: start: 20100803
  6. ROACTEMRA [Suspect]
     Indication: RHEUMATOID ARTHRITIS
     Route: 042
     Dates: start: 20100610
  7. ROACTEMRA [Suspect]
     Route: 042
     Dates: start: 20101026
  8. RYTHMOL [Suspect]
     Indication: ATRIAL FIBRILLATION
     Route: 048
     Dates: start: 20070501, end: 20100922

REACTIONS (2)
  - ARRHYTHMIA SUPRAVENTRICULAR [None]
  - DRUG INEFFECTIVE [None]
